FAERS Safety Report 5409217-0 (Version None)
Quarter: 2007Q3

REPORT INFORMATION
  Report Type: 
  Country: None (occurrence: None)
  Receive Date: 20070807
  Receipt Date: 20070807
  Transmission Date: 20080115
  Serious: Yes (Life-Threatening, Hospitalization, Disabling, Other)
  Sender: FDA-Public Use
  Company Number: None

PATIENT
  Sex: Female
  Weight: 54.4316 kg

DRUGS (1)
  1. ZELNORM [Suspect]
     Indication: IRRITABLE BOWEL SYNDROME
     Dates: start: 20040101

REACTIONS (8)
  - ARRHYTHMIA [None]
  - CARDIAC DISORDER [None]
  - CYST [None]
  - DYSPEPSIA [None]
  - GASTRIC DISORDER [None]
  - HERNIA [None]
  - INFECTION [None]
  - LARGE INTESTINE PERFORATION [None]
